FAERS Safety Report 10008471 (Version 3)
Quarter: 2014Q1

REPORT INFORMATION
  Report Type: Spontaneous
  Country: US (occurrence: US)
  Receive Date: 20140313
  Receipt Date: 20140328
  Transmission Date: 20141002
  Serious: Yes (Hospitalization, Other)
  Sender: FDA-Public Use
  Company Number: US-B.I. PHARMACEUTICALS,INC./RIDGEFIELD-2013-BI-34744BP

PATIENT
  Sex: Male
  Weight: 77.11 kg

DRUGS (14)
  1. PRADAXA [Suspect]
     Indication: ATRIAL FIBRILLATION
     Dosage: 300 MG
     Route: 048
     Dates: start: 201108, end: 201204
  2. AMIODARONE [Concomitant]
     Dosage: 560 MG
     Route: 065
     Dates: start: 2010
  3. ATORVASTATIN [Concomitant]
     Route: 065
     Dates: start: 2009
  4. DILTIAZEM [Concomitant]
     Route: 065
     Dates: start: 2009
  5. LASIX [Concomitant]
     Route: 065
     Dates: start: 2009
  6. HUMIRA [Concomitant]
     Route: 065
     Dates: start: 2009
  7. LISINOPRIL [Concomitant]
     Route: 065
     Dates: start: 2009
  8. POTASSIUM [Concomitant]
     Route: 065
     Dates: start: 2009
  9. NASONEX [Concomitant]
     Route: 065
     Dates: start: 2009
  10. PROVENTIL INHALER [Concomitant]
     Route: 065
     Dates: start: 2009
  11. VIAGRA [Concomitant]
     Route: 065
     Dates: start: 2009
  12. TRAMADOL [Concomitant]
     Route: 065
     Dates: start: 2009
  13. LORCET [Concomitant]
     Route: 065
     Dates: start: 2009
  14. CELEBREX [Concomitant]
     Route: 065
     Dates: start: 2009

REACTIONS (6)
  - Pulmonary alveolar haemorrhage [Unknown]
  - Respiratory failure [Unknown]
  - Epistaxis [Unknown]
  - Rectal haemorrhage [Unknown]
  - Haematospermia [Unknown]
  - Haemorrhage [Unknown]
